FAERS Safety Report 11613699 (Version 2)
Quarter: 2015Q4

REPORT INFORMATION
  Report Type: Spontaneous
  Country: BR (occurrence: BR)
  Receive Date: 20151008
  Receipt Date: 20151023
  Transmission Date: 20160304
  Serious: Yes (Life-Threatening, Hospitalization)
  Sender: FDA-Public Use
  Company Number: BR-GE HEALTHCARE MEDICAL DIAGNOSTICS-OMPQ-PR-1510S-2101

PATIENT
  Age: 60 Year
  Sex: Female

DRUGS (10)
  1. OMNIPAQUE [Suspect]
     Active Substance: IOHEXOL
     Indication: THROMBOSIS
     Route: 042
     Dates: start: 20150823, end: 20150823
  2. HYDROCHLOROTHIAZIDE. [Concomitant]
     Active Substance: HYDROCHLOROTHIAZIDE
  3. RANITIDINE [Concomitant]
     Active Substance: RANITIDINE\RANITIDINE HYDROCHLORIDE
  4. ENOXAPARIN [Concomitant]
     Active Substance: ENOXAPARIN
  5. FUROSEMIDE. [Concomitant]
     Active Substance: FUROSEMIDE
  6. OMNIPAQUE [Suspect]
     Active Substance: IOHEXOL
     Indication: DIAGNOSTIC PROCEDURE
  7. CAPTOPRIL. [Concomitant]
     Active Substance: CAPTOPRIL
  8. LEVOFLOXACIN. [Concomitant]
     Active Substance: LEVOFLOXACIN
  9. METOCLOPRAMIDE. [Concomitant]
     Active Substance: METOCLOPRAMIDE
  10. HYDROCORTISONE. [Concomitant]
     Active Substance: HYDROCORTISONE

REACTIONS (3)
  - Pulseless electrical activity [Recovering/Resolving]
  - Depressed level of consciousness [Recovering/Resolving]
  - Dyspnoea [Recovering/Resolving]

NARRATIVE: CASE EVENT DATE: 20150823
